FAERS Safety Report 9374792 (Version 1)
Quarter: 2013Q2

REPORT INFORMATION
  Report Type: Spontaneous
  Country: IN (occurrence: IN)
  Receive Date: 20130628
  Receipt Date: 20130628
  Transmission Date: 20140414
  Serious: Yes (Other)
  Sender: FDA-Public Use
  Company Number: IN-BAYER-2013-075942

PATIENT
  Age: 66 Year
  Sex: Male

DRUGS (3)
  1. MOXIFLOXACIN IV [Suspect]
     Indication: PNEUMONIA
     Dosage: 400 MG
     Route: 042
  2. CEFEPIME [Concomitant]
     Route: 042
  3. TAZOBACTAM SODIUM [Concomitant]
     Route: 042

REACTIONS (4)
  - Hypoglycaemia [Recovered/Resolved]
  - Tremor [Recovered/Resolved]
  - Hyperhidrosis [Recovered/Resolved]
  - Hyperglycaemia [Not Recovered/Not Resolved]
